FAERS Safety Report 6104643-9 (Version None)
Quarter: 2009Q1

REPORT INFORMATION
  Report Type: 
  Country: None (occurrence: None)
  Receive Date: 20090303
  Receipt Date: 20090203
  Transmission Date: 20090719
  Serious: Yes (Hospitalization)
  Sender: FDA-Public Use
  Company Number: 20096291

PATIENT
  Age: 7 Year
  Sex: Female

DRUGS (1)
  1. LIORESAL [Suspect]
     Indication: MUSCLE SPASTICITY
     Dosage: 675 MCG, DAILY, INTRATHECAL
     Route: 037

REACTIONS (5)
  - BRADYPNOEA [None]
  - CEREBRAL VENTRICLE DILATATION [None]
  - LETHARGY [None]
  - OPERATIVE HAEMORRHAGE [None]
  - PROCEDURAL COMPLICATION [None]
